FAERS Safety Report 8561422 (Version 7)
Quarter: 2013Q1

REPORT INFORMATION
  Report Type: Spontaneous
  Country: IE (occurrence: IE)
  Receive Date: 20120514
  Receipt Date: 20130107
  Transmission Date: 20140127
  Serious: Yes (Death, Hospitalization)
  Sender: FDA-Public Use
  Company Number: GB-ELI_LILLY_AND_COMPANY-IE201204002848

PATIENT
  Sex: Female

DRUGS (6)
  1. FORSTEO [Suspect]
     Indication: OSTEOPOROSIS
     Dosage: 20 UG, UNK
     Route: 058
     Dates: start: 20120404, end: 20120406
  2. RAMIPRIL [Concomitant]
  3. MOVICOL                            /01625101/ [Concomitant]
  4. CALCICHEW [Concomitant]
  5. PANADOL [Concomitant]
  6. LUSTRAL [Concomitant]

REACTIONS (5)
  - Pneumonia [Fatal]
  - Dementia [Fatal]
  - Respiratory failure [Not Recovered/Not Resolved]
  - Convulsion [Recovered/Resolved]
  - Dizziness [Unknown]
